FAERS Safety Report 22279130 (Version 1)
Quarter: 2023Q2

REPORT INFORMATION
  Report Type: Spontaneous
  Country: CN (occurrence: CN)
  Receive Date: 20230503
  Receipt Date: 20230503
  Transmission Date: 20230721
  Serious: Yes (Life-Threatening)
  Sender: FDA-Public Use
  Company Number: CN-BAYER-2023A060918

PATIENT
  Age: 48 Year
  Sex: Female
  Weight: 66 kg

DRUGS (2)
  1. ULTRAVIST [Suspect]
     Active Substance: IOPROMIDE
     Indication: Computerised tomogram
     Dosage: 89 ML, ONCE
     Route: 042
     Dates: start: 20230418, end: 20230418
  2. ULTRAVIST [Suspect]
     Active Substance: IOPROMIDE
     Indication: Lung neoplasm malignant

REACTIONS (5)
  - Anaphylactic shock [Recovering/Resolving]
  - Rash [Recovering/Resolving]
  - Eyelid oedema [Recovering/Resolving]
  - Chills [Recovering/Resolving]
  - Dizziness [Recovering/Resolving]

NARRATIVE: CASE EVENT DATE: 20230418
